FAERS Safety Report 12559306 (Version 5)
Quarter: 2016Q4

REPORT INFORMATION
  Report Type: Report from Study
  Country: PL (occurrence: PL)
  Receive Date: 20160715
  Receipt Date: 20161220
  Transmission Date: 20170207
  Serious: Yes (Hospitalization)
  Sender: FDA-Public Use
  Company Number: PL-ROCHE-1792028

PATIENT
  Age: 79 Year
  Sex: Female
  Weight: 72 kg

DRUGS (10)
  1. SPASMALGON [Concomitant]
     Active Substance: FENPIVERINIUM BROMIDE\METAMIZOLE SODIUM\PITOFENONE HYDROCHLORIDE
     Route: 065
     Dates: start: 201606, end: 201606
  2. LERIVON [Concomitant]
     Active Substance: MIANSERIN HYDROCHLORIDE
     Route: 065
     Dates: start: 20160715, end: 2016
  3. PROCORALAN [Concomitant]
     Active Substance: IVABRADINE
     Route: 065
     Dates: start: 20160715, end: 2016
  4. COBIMETINIB [Suspect]
     Active Substance: COBIMETINIB
     Indication: METASTATIC MALIGNANT MELANOMA
     Dosage: DATE OF MOST RECENT DOSE PRIOR TO THE EVENT OF RESPIRATORY TRACT INFECTION ONSET: 20/JUN/2016 OF 80
     Route: 048
     Dates: start: 20160611, end: 20160708
  5. LORAFEN [Concomitant]
     Active Substance: LORAZEPAM
     Route: 065
     Dates: end: 2016
  6. OXYDOLOR [Concomitant]
     Route: 065
     Dates: start: 2016
  7. VEMURAFENIB [Suspect]
     Active Substance: VEMURAFENIB
     Indication: METASTATIC MALIGNANT MELANOMA
     Dosage: DATE OF MOST RECENT DOSE PRIOR TO THE EVENT OF RESPIRATORY INFECTION ONSET: 20/JUN/2016 OF 960 MG?DA
     Route: 048
     Dates: start: 20160611
  8. PREDUCTAL MR [Concomitant]
     Active Substance: TRIMETAZIDINE DIHYDROCHLORIDE
     Route: 065
     Dates: start: 20160715, end: 2016
  9. TRIFAS [Concomitant]
     Route: 065
     Dates: start: 20160715, end: 2016
  10. VIVACE (POLAND) [Concomitant]
     Route: 065
     Dates: start: 20160715, end: 2016

REACTIONS (3)
  - Cardiac failure [Recovered/Resolved]
  - Gastrointestinal obstruction [Recovered/Resolved]
  - Respiratory tract infection [Recovered/Resolved]

NARRATIVE: CASE EVENT DATE: 20160620
